FAERS Safety Report 9839267 (Version 1)
Quarter: 2014Q1

REPORT INFORMATION
  Report Type: Spontaneous
  Country: US (occurrence: None)
  Receive Date: 20140116
  Receipt Date: 20140116
  Transmission Date: 20141002
  Serious: Yes (Hospitalization)
  Sender: FDA-Public Use
  Company Number: B0959904A

PATIENT
  Age: 37 Year
  Sex: Female

DRUGS (10)
  1. QUETIAPINE [Suspect]
     Indication: SUICIDAL BEHAVIOUR
     Dosage: UNK/ UNK/ UNKNOWN
  2. PAROXETINE HYDROCHLORIDE (FORMULATION UNKNOWN) (GENERIC) (PAROXETINE HYDROCHLORIDE) [Suspect]
     Indication: PRODUCT USED FOR UNKNOWN INDICATION
     Dosage: UNK/ UNK/ UNKNOWN
  3. FLUOXETINE [Suspect]
     Indication: PRODUCT USED FOR UNKNOWN INDICATION
     Dosage: UNK/ UNK/ UNKNOWN
  4. LAMOTRIGINE (FORMULATION UNKNOWN) (GENERIC) (LAMOTRIGINE) [Suspect]
     Indication: PRODUCT USED FOR UNKNOWN INDICATION
     Dosage: UNK/ UNK/ UNKNOWN
  5. BETAMETHASONE [Suspect]
     Indication: PRODUCT USED FOR UNKNOWN INDICATION
     Dosage: UNK/ UNK/ UNKNOWN
  6. CLONAZEPAM [Suspect]
     Indication: PRODUCT USED FOR UNKNOWN INDICATION
     Dosage: UNK/ UNK/ UNKNOWN
  7. LORAZEPAM [Suspect]
     Indication: PRODUCT USED FOR UNKNOWN INDICATION
     Dosage: UNK/ UNK/ UNKNOWN
  8. HALOPERIDOL [Suspect]
     Indication: PRODUCT USED FOR UNKNOWN INDICATION
     Dosage: UNK/ UNK/ UNKNOWN
  9. GLIBENCLAMIDE [Suspect]
     Indication: GESTATIONAL DIABETES
     Dosage: UNK/ UNK/ UNKNOWN
  10. ANESTHETIC [Suspect]
     Indication: CAESAREAN SECTION
     Dosage: UNK/ UNK/ UNKNOWN

REACTIONS (15)
  - Intentional overdose [None]
  - Exposure during pregnancy [None]
  - Suicide attempt [None]
  - Loss of consciousness [None]
  - Fatigue [None]
  - Anxiety [None]
  - Refusal of treatment by patient [None]
  - Gestational diabetes [None]
  - Pre-eclampsia [None]
  - Transaminases increased [None]
  - Hypertension [None]
  - Transverse presentation [None]
  - Caesarean section [None]
  - Depression [None]
  - Suicidal ideation [None]
